FAERS Safety Report 19178851 (Version 1)
Quarter: 2021Q2

REPORT INFORMATION
  Report Type: Spontaneous
  Country: IT (occurrence: IT)
  Receive Date: 20210426
  Receipt Date: 20210426
  Transmission Date: 20210717
  Serious: Yes (Hospitalization)
  Sender: FDA-Public Use
  Company Number: IT-LUPIN PHARMACEUTICALS INC.-2021-05205

PATIENT
  Age: 26 Year
  Sex: Female

DRUGS (12)
  1. VALPROATE [Suspect]
     Active Substance: VALPROIC ACID
     Indication: STATUS EPILEPTICUS
     Dosage: 30 MILLIGRAM/KILOGRAM, INTRAVENOUS BOLUS
     Route: 042
  2. PHENYTOIN SODIUM. [Suspect]
     Active Substance: PHENYTOIN SODIUM
     Dosage: 20 MILLIGRAM/KILOGRAM
     Route: 040
  3. TOPIRAMAT [Suspect]
     Active Substance: TOPIRAMATE
     Dosage: 400 MILLIGRAM, QD
     Route: 048
  4. VALPROATE [Suspect]
     Active Substance: VALPROIC ACID
     Dosage: 1.5 MILLIGRAM/KILOGRAM PER HOUR, INTRAVENOUS INFUSION
     Route: 042
  5. PHENYTOIN SODIUM. [Suspect]
     Active Substance: PHENYTOIN SODIUM
     Indication: STATUS EPILEPTICUS
     Dosage: 400 MILLIGRAM, QD
     Route: 048
  6. LACOSAMIDE. [Suspect]
     Active Substance: LACOSAMIDE
     Dosage: 400 MILLIGRAM, QD, INTRAVENOUS INFUSION
     Route: 042
  7. LEVETIRACETAM. [Suspect]
     Active Substance: LEVETIRACETAM
     Dosage: 3.5 MILLIGRAM/KILOGRAM PER HOUR, INTRAVENOUS INFUSION
     Route: 042
  8. TOPIRAMAT [Suspect]
     Active Substance: TOPIRAMATE
     Indication: STATUS EPILEPTICUS
     Dosage: 400 MILLIGRAM, ORAL BOLUS
     Route: 048
  9. PROPOFOL. [Suspect]
     Active Substance: PROPOFOL
     Indication: STATUS EPILEPTICUS
     Dosage: UNK
     Route: 065
  10. MIDAZOLAM. [Suspect]
     Active Substance: MIDAZOLAM
     Indication: STATUS EPILEPTICUS
     Dosage: UNK
     Route: 065
  11. LEVETIRACETAM. [Suspect]
     Active Substance: LEVETIRACETAM
     Indication: STATUS EPILEPTICUS
     Dosage: 40 MILLIGRAM/KILOGRAM
     Route: 040
  12. LACOSAMIDE. [Suspect]
     Active Substance: LACOSAMIDE
     Indication: STATUS EPILEPTICUS
     Dosage: 400 MILLIGRAM
     Route: 040

REACTIONS (1)
  - Treatment failure [Unknown]
